FAERS Safety Report 22189270 (Version 1)
Quarter: 2023Q2

REPORT INFORMATION
  Report Type: Report from Study
  Country: US (occurrence: US)
  Receive Date: 20230410
  Receipt Date: 20230410
  Transmission Date: 20230722
  Serious: No
  Sender: FDA-Public Use
  Company Number: US-ETON PHARMACEUTICALS, INC-2023ETO000072

PATIENT

DRUGS (1)
  1. ALKINDI SPRINKLE [Suspect]
     Active Substance: HYDROCORTISONE
     Indication: Adrenal disorder
     Dosage: 2 MILLIGRAM, QD
     Route: 048
     Dates: start: 20230323

REACTIONS (3)
  - Incorrect dose administered [Unknown]
  - Oropharyngeal pain [Unknown]
  - Ear infection [Unknown]
